FAERS Safety Report 5884630-6 (Version None)
Quarter: 2008Q3

REPORT INFORMATION
  Report Type: 
  Country: None (occurrence: None)
  Receive Date: 20080915
  Receipt Date: 20080915
  Transmission Date: 20090109
  Serious: Yes (Other)
  Sender: FDA-Public Use
  Company Number: None

PATIENT
  Age: 24 Year
  Sex: Female
  Weight: 52.1637 kg

DRUGS (2)
  1. PRISTIQ [Suspect]
     Indication: ANXIETY
     Dosage: 50MG PO
     Route: 048
     Dates: start: 20080909, end: 20080911
  2. PRISTIQ [Suspect]
     Indication: DEPRESSION
     Dosage: 50MG PO
     Route: 048
     Dates: start: 20080909, end: 20080911

REACTIONS (5)
  - CONFUSIONAL STATE [None]
  - FEELING ABNORMAL [None]
  - HEADACHE [None]
  - MYDRIASIS [None]
  - OVERDOSE [None]
